FAERS Safety Report 22617082 (Version 5)
Quarter: 2024Q3

REPORT INFORMATION
  Report Type: Spontaneous
  Country: PL (occurrence: PL)
  Receive Date: 20230620
  Receipt Date: 20240821
  Transmission Date: 20241016
  Serious: Yes (Hospitalization, Other)
  Sender: AUROBINDO
  Company Number: PL-RECORDATI-2023003432

PATIENT
  Age: 89 Year
  Sex: Female

DRUGS (7)
  1. AMLODIPINE [Suspect]
     Active Substance: AMLODIPINE BESYLATE
     Indication: Hypertension
     Dosage: UNK
     Route: 065
  2. AMLODIPINE [Suspect]
     Active Substance: AMLODIPINE BESYLATE
     Dosage: 2.5 MILLIGRAM
     Route: 065
     Dates: start: 2022, end: 2023
  3. RAMIPRIL [Suspect]
     Active Substance: RAMIPRIL
     Indication: Hypertension
     Dosage: UNK
     Route: 065
     Dates: start: 2021
  4. RAMIPRIL [Suspect]
     Active Substance: RAMIPRIL
     Dosage: 1.25 MILLIGRAM
     Route: 048
     Dates: start: 2022, end: 2023
  5. METHYLPREDNISOLONE [Concomitant]
     Active Substance: METHYLPREDNISOLONE
     Indication: Product used for unknown indication
     Dosage: UNK
     Route: 065
  6. CLOBETASOL [Concomitant]
     Active Substance: CLOBETASOL
     Indication: Skin lesion
     Dosage: UNK
     Route: 061
  7. HYDROXYCHLOROQUINE [Concomitant]
     Active Substance: HYDROXYCHLOROQUINE
     Indication: Skin lesion
     Dosage: 200 MILLIGRAM, ONCE A DAY
     Route: 065

REACTIONS (3)
  - Subacute cutaneous lupus erythematosus [Recovering/Resolving]
  - Erythema annulare [Unknown]
  - Lupus-like syndrome [Unknown]

NARRATIVE: CASE EVENT DATE: 20220601
